FAERS Safety Report 9328654 (Version 1)
Quarter: 2013Q2

REPORT INFORMATION
  Report Type: Spontaneous
  Country: US (occurrence: US)
  Receive Date: 20130604
  Receipt Date: 20130604
  Transmission Date: 20140414
  Serious: No
  Sender: FDA-Public Use
  Company Number: US-SANOFI-AVENTIS-2012SA026645

PATIENT
  Age: 81 Year
  Sex: Male

DRUGS (2)
  1. LANTUS [Suspect]
     Indication: DIABETES MELLITUS
     Dosage: DOSE:8 UNIT(S)
     Route: 058
  2. SOLOSTAR [Suspect]

REACTIONS (4)
  - Malaise [Unknown]
  - Hyperglycaemia [Unknown]
  - Product quality issue [Unknown]
  - Drug ineffective [Unknown]
